FAERS Safety Report 6726803-6 (Version None)
Quarter: 2010Q2

REPORT INFORMATION
  Report Type: 
  Country: None (occurrence: None)
  Receive Date: 20100516
  Receipt Date: 20100505
  Transmission Date: 20101027
  Serious: Yes (Other)
  Sender: FDA-Public Use
  Company Number: US-JNJFOC-20100502550

PATIENT
  Age: 10 Month

DRUGS (2)
  1. TYLENOL INFANTS SUSP DROPS [Suspect]
  2. TYLENOL INFANTS SUSP DROPS [Suspect]
     Indication: DRUG USE FOR UNKNOWN INDICATION

REACTIONS (2)
  - PRODUCT CONTAMINATION [None]
  - VOMITING [None]
